FAERS Safety Report 4339283-5 (Version None)
Quarter: 2004Q2

REPORT INFORMATION
  Report Type: 
  Country: None (occurrence: None)
  Receive Date: 20040415
  Receipt Date: 20040226
  Transmission Date: 20050107
  Serious: Yes (Disabling)
  Sender: FDA-Public Use
  Company Number: FR-BRISTOL-MYERS SQUIBB COMPANY-12517975

PATIENT
  Age: 58 Year
  Sex: Male

DRUGS (5)
  1. VASTEN TABS 40 MG [Suspect]
     Indication: CORONARY ARTERY DISEASE
     Route: 048
     Dates: start: 19991101, end: 20030901
  2. SOLUPRED [Concomitant]
     Route: 048
     Dates: start: 20000201, end: 20040301
  3. HYDREA [Concomitant]
     Indication: THROMBOCYTHAEMIA
     Route: 048
     Dates: start: 20000101
  4. KARDEGIC [Concomitant]
     Indication: MYOCARDIAL INFARCTION
     Dosage: ^POWDER^
     Route: 048
     Dates: start: 19990101
  5. DILTIAZEM HYDROCHLORIDE [Concomitant]
     Indication: MYOCARDIAL INFARCTION
     Route: 048
     Dates: start: 20020101

REACTIONS (4)
  - FINGER DEFORMITY [None]
  - MEMORY IMPAIRMENT [None]
  - MYALGIA [None]
  - TENDONITIS [None]
